FAERS Safety Report 7188006-3 (Version None)
Quarter: 2010Q4

REPORT INFORMATION
  Report Type: 
  Country: None (occurrence: None)
  Receive Date: 20101222
  Receipt Date: 20101217
  Transmission Date: 20110411
  Serious: Yes (Other)
  Sender: FDA-Public Use
  Company Number: FR-PFIZER INC-2010174503

PATIENT
  Age: 28 Year
  Sex: Female

DRUGS (2)
  1. DOSTINEX [Suspect]
     Indication: PITUITARY TUMOUR
     Dosage: 0.5 MG, WEEKLY
     Dates: start: 20100201, end: 20100801
  2. DOSTINEX [Suspect]
     Dosage: UNK
     Dates: start: 20101101

REACTIONS (1)
  - ABORTION SPONTANEOUS [None]
